FAERS Safety Report 11212171 (Version 1)
Quarter: 2015Q2

REPORT INFORMATION
  Report Type: Spontaneous
  Country: US (occurrence: None)
  Receive Date: 20150622
  Receipt Date: 20150622
  Transmission Date: 20150821
  Serious: Yes (Other)
  Sender: FDA-Public Use
  Company Number: None

PATIENT
  Age: 87 Year
  Sex: Female
  Weight: 86.18 kg

DRUGS (7)
  1. DOXYCLINE [Suspect]
     Active Substance: DOXYCYCLINE
     Indication: PEMPHIGOID
     Route: 048
  2. LOSARTAN [Concomitant]
     Active Substance: LOSARTAN
  3. CARVEDILOL. [Concomitant]
     Active Substance: CARVEDILOL
  4. METFORMIN [Concomitant]
     Active Substance: METFORMIN HYDROCHLORIDE
  5. FUROSEMIDE. [Concomitant]
     Active Substance: FUROSEMIDE
  6. WARFARIN [Concomitant]
     Active Substance: WARFARIN
  7. ASPIRIN. [Concomitant]
     Active Substance: ASPIRIN

REACTIONS (4)
  - Pemphigoid [None]
  - Rash maculo-papular [None]
  - Nail pigmentation [None]
  - Skin discolouration [None]

NARRATIVE: CASE EVENT DATE: 20150119
